FAERS Safety Report 13610429 (Version 3)
Quarter: 2017Q3

REPORT INFORMATION
  Report Type: Spontaneous
  Country: US (occurrence: US)
  Receive Date: 20170605
  Receipt Date: 20170802
  Transmission Date: 20171127
  Serious: Yes (Other)
  Sender: FDA-Public Use
  Company Number: US-GLAXOSMITHKLINE-US2017080627

PATIENT
  Age: 79 Year
  Sex: Male

DRUGS (3)
  1. ISOSORBIDE. [Concomitant]
     Active Substance: ISOSORBIDE
  2. BREO ELLIPTA [Suspect]
     Active Substance: FLUTICASONE FUROATE\VILANTEROL TRIFENATATE
     Indication: PRODUCT USED FOR UNKNOWN INDICATION
     Dosage: 1 PUFF(S), QD
     Dates: start: 201702
  3. CLOPIDOGREL [Concomitant]
     Active Substance: CLOPIDOGREL BISULFATE

REACTIONS (6)
  - Wheezing [Recovered/Resolved]
  - Product quality issue [Unknown]
  - Coronary arterial stent insertion [Unknown]
  - Device use error [Unknown]
  - Catheterisation cardiac [Unknown]
  - Wrong technique in product usage process [Unknown]

NARRATIVE: CASE EVENT DATE: 201703
